FAERS Safety Report 24150750 (Version 1)
Quarter: 2024Q3

REPORT INFORMATION
  Report Type: Spontaneous
  Country: GB (occurrence: GB)
  Receive Date: 20240730
  Receipt Date: 20240730
  Transmission Date: 20241016
  Serious: Yes (Hospitalization, Other)
  Sender: HIKMA
  Company Number: GB-ROCHE-3230291

PATIENT

DRUGS (10)
  1. ATEZOLIZUMAB [Suspect]
     Active Substance: ATEZOLIZUMAB
     Indication: Small cell lung cancer extensive stage
     Dosage: 1200MG, ONCE IN THREE WEEKS
     Route: 042
     Dates: start: 20220728
  2. ATEZOLIZUMAB [Suspect]
     Active Substance: ATEZOLIZUMAB
     Dosage: MOST RECENT DOSE OF 1200MG PRIOR AE/SAE
     Route: 042
     Dates: start: 20220929
  3. CARBOPLATIN [Suspect]
     Active Substance: CARBOPLATIN
     Indication: Small cell lung cancer extensive stage
     Dosage: 560MG, ONCE IN THREE WEEKS
     Route: 065
     Dates: start: 20220728
  4. CARBOPLATIN [Suspect]
     Active Substance: CARBOPLATIN
     Dosage: MOST RECENT DOSE OF 630MG PRIOR SAE AND AE
     Route: 065
     Dates: start: 20220920
  5. CARBOPLATIN [Suspect]
     Active Substance: CARBOPLATIN
     Dosage: MOST RECENT DOSE OF 630MG PRIOR SAE AND AE
     Route: 065
     Dates: start: 20220929
  6. ETOPOSIDE [Suspect]
     Active Substance: ETOPOSIDE
     Indication: Small cell lung cancer extensive stage
     Dosage: 180MG / ON START DATE AND END DATE OF RECEIVED MOST RECENT DOSE OF ETOPOSIDE (400MG) PRIOR AE/SAE ON
     Route: 065
     Dates: start: 20220728
  7. ETOPOSIDE [Suspect]
     Active Substance: ETOPOSIDE
     Dosage: MOST RECENT DOSE OF ETOPOSIDE (400MG) PRIOR AE/SAE ACCORDING TO THE STANDARD OF CARE TREATMENT FOR 4
     Route: 065
     Dates: start: 20221001
  8. CYCLIZINE [Concomitant]
     Active Substance: CYCLIZINE
     Indication: Vomiting
     Dosage: UNKNOWN
     Route: 065
     Dates: start: 20220909, end: 20221001
  9. DEXAMETHASONE [Concomitant]
     Active Substance: DEXAMETHASONE
     Indication: Product used for unknown indication
     Dosage: 8 MILLIGRAM, PRN
     Route: 042
     Dates: start: 20220929, end: 20220929
  10. ONDANSETRON [Concomitant]
     Active Substance: ONDANSETRON
     Indication: Product used for unknown indication
     Dosage: UNKNOWN
     Route: 065
     Dates: start: 20220929, end: 20220929

REACTIONS (13)
  - Myocardial infarction [Recovered/Resolved]
  - Angina pectoris [Unknown]
  - Dyspnoea [Unknown]
  - Hypotension [Unknown]
  - Tachycardia [Unknown]
  - Troponin increased [Unknown]
  - Atelectasis [Unknown]
  - Emphysema [Unknown]
  - Multiple sclerosis [Unknown]
  - Ejection fraction decreased [Unknown]
  - Dilatation atrial [Unknown]
  - Hypokinesia [Unknown]
  - Pericardial effusion [Unknown]

NARRATIVE: CASE EVENT DATE: 20221020
